FAERS Safety Report 10236229 (Version 1)
Quarter: 2014Q2

REPORT INFORMATION
  Report Type: Spontaneous
  Country: US (occurrence: None)
  Receive Date: 20140612
  Receipt Date: 20140612
  Transmission Date: 20141212
  Serious: Yes (Other)
  Sender: FDA-Public Use
  Company Number: None

PATIENT
  Age: 17 Year
  Sex: Female
  Weight: 67.59 kg

DRUGS (2)
  1. KEPPRA XR 500MG [Suspect]
     Indication: EPILEPSY
     Dosage: 8  QD  PO
     Route: 048
     Dates: start: 20030603
  2. ZONEGRAN 100MG [Suspect]
     Indication: ENCEPHALOPATHY
     Dosage: 2  BID  PO
     Route: 048
     Dates: start: 20080208

REACTIONS (4)
  - Rash [None]
  - Convulsion [None]
  - Condition aggravated [None]
  - Product substitution issue [None]
